FAERS Safety Report 8020824-1 (Version None)
Quarter: 2012Q1

REPORT INFORMATION
  Report Type: 
  Country: None (occurrence: None)
  Receive Date: 20120104
  Receipt Date: 20090310
  Transmission Date: 20120608
  Serious: No
  Sender: FDA-Public Use
  Company Number: 2009BI008367

PATIENT
  Age: 51 Year
  Sex: Female

DRUGS (3)
  1. TYSABRI [Suspect]
     Indication: MULTIPLE SCLEROSIS
     Route: 042
     Dates: start: 20080408, end: 20090112
  2. TYSABRI [Suspect]
     Route: 042
     Dates: start: 20090209
  3. BENADRYL [Concomitant]
     Indication: PREMEDICATION

REACTIONS (3)
  - FATIGUE [None]
  - SOMNOLENCE [None]
  - RASH [None]
